FAERS Safety Report 5490323-X (Version None)
Quarter: 2007Q4

REPORT INFORMATION
  Report Type: 
  Country: None (occurrence: None)
  Receive Date: 20071017
  Receipt Date: 20071011
  Transmission Date: 20080405
  Serious: No
  Sender: FDA-Public Use
  Company Number: 163-21880-06040170

PATIENT
  Age: 71 Year
  Sex: Male

DRUGS (2)
  1. REVLIMID [Suspect]
     Indication: MYELODYSPLASTIC SYNDROME
     Dosage: 10 MG, DAILY, ORAL
     Route: 048
     Dates: start: 20060228, end: 20060315
  2. TRANSFUSION [Concomitant]

REACTIONS (2)
  - DISEASE PROGRESSION [None]
  - HAEMOGLOBIN DECREASED [None]
